FAERS Safety Report 11539354 (Version 1)
Quarter: 2015Q3

REPORT INFORMATION
  Report Type: Spontaneous
  Country: FR (occurrence: FR)
  Receive Date: 20150923
  Receipt Date: 20150923
  Transmission Date: 20151125
  Serious: Yes (Other)
  Sender: FDA-Public Use
  Company Number: FR-ELI_LILLY_AND_COMPANY-FR201509004711

PATIENT
  Age: 50 Year
  Sex: Male

DRUGS (4)
  1. TERALITHE [Suspect]
     Active Substance: LITHIUM CARBONATE
     Dosage: UNK
  2. TERALITHE [Suspect]
     Active Substance: LITHIUM CARBONATE
     Indication: BIPOLAR DISORDER
     Dosage: 250 MG, TID
     Route: 048
     Dates: start: 19991201
  3. PROZAC [Suspect]
     Active Substance: FLUOXETINE HYDROCHLORIDE
     Indication: PRODUCT USED FOR UNKNOWN INDICATION
     Dosage: 10 MG, QD
     Route: 065
     Dates: start: 2012
  4. PROZAC [Suspect]
     Active Substance: FLUOXETINE HYDROCHLORIDE
     Dosage: 20 MG, QD
     Route: 065
     Dates: start: 2012

REACTIONS (10)
  - Thyroxine decreased [Unknown]
  - Goitre [Unknown]
  - Hypercholesterolaemia [Unknown]
  - Paraesthesia [Recovering/Resolving]
  - Tri-iodothyronine decreased [Unknown]
  - Carpal tunnel syndrome [Recovering/Resolving]
  - Neuropathy peripheral [Unknown]
  - Muscle contractions involuntary [Unknown]
  - Bradycardia [Unknown]
  - Hypothyroidism [Unknown]

NARRATIVE: CASE EVENT DATE: 20130401
